FAERS Safety Report 9185126 (Version 1)
Quarter: 2013Q1

REPORT INFORMATION
  Report Type: Report from Study
  Country: US (occurrence: US)
  Receive Date: 20130325
  Receipt Date: 20130325
  Transmission Date: 20140127
  Serious: Yes (Death)
  Sender: FDA-Public Use
  Company Number: US-TEVA-382315USA

PATIENT
  Sex: Female

DRUGS (8)
  1. CLARAVIS [Suspect]
     Route: 048
     Dates: start: 201212
  2. TRAZODONE [Concomitant]
  3. XANAX [Concomitant]
  4. ALBUTEROL [Concomitant]
  5. CELEXA [Concomitant]
  6. ZANTAC [Concomitant]
  7. ZANTAC [Concomitant]
  8. DEPAKOTE [Concomitant]

REACTIONS (1)
  - Death [Fatal]
